FAERS Safety Report 8476267-X (Version None)
Quarter: 2012Q2

REPORT INFORMATION
  Report Type: 
  Country: None (occurrence: None)
  Receive Date: 20120628
  Receipt Date: 20120604
  Transmission Date: 20120825
  Serious: No
  Sender: FDA-Public Use
  Company Number: BR-ELI_LILLY_AND_COMPANY-BR201206001433

PATIENT
  Age: 59 Year
  Sex: Female
  Weight: 50 kg

DRUGS (4)
  1. CALCIUM [Concomitant]
     Indication: OSTEOPOROSIS
     Dosage: UNK, UNKNOWN
     Route: 048
  2. LOVAZA [Concomitant]
     Dosage: UNK, UNKNOWN
     Route: 048
  3. ZYPREXA [Suspect]
     Dosage: UNK, UNKNOWN
     Route: 065
  4. PONDERA [Concomitant]
     Indication: DEPRESSION
     Dosage: UNK, UNKNOWN
     Route: 048
     Dates: start: 20090101

REACTIONS (2)
  - EPISTAXIS [None]
  - NASAL OEDEMA [None]
